FAERS Safety Report 10933798 (Version 3)
Quarter: 2015Q3

REPORT INFORMATION
  Report Type: Spontaneous
  Country: US (occurrence: US)
  Receive Date: 20150320
  Receipt Date: 20150826
  Transmission Date: 20151125
  Serious: Yes (Death, Other)
  Sender: FDA-Public Use
  Company Number: US-ASTRAZENECA-2014SE56409

PATIENT
  Age: 919 Month
  Sex: Male
  Weight: 84.8 kg

DRUGS (26)
  1. LOSARTAN. [Concomitant]
     Active Substance: LOSARTAN
     Route: 048
  2. COLACE [Concomitant]
     Active Substance: DOCUSATE SODIUM
     Route: 048
     Dates: start: 20130329
  3. BYETTA [Suspect]
     Active Substance: EXENATIDE
     Indication: TYPE 2 DIABETES MELLITUS
     Route: 065
     Dates: start: 20050627, end: 20060109
  4. INSULIN [Concomitant]
     Active Substance: INSULIN NOS
     Dosage: 40 UNITS BEFORE BREAKFAST
     Route: 058
  5. OXYCODONE HCL [Concomitant]
     Active Substance: OXYCODONE HYDROCHLORIDE
     Dates: start: 20130318
  6. TENORMIN [Concomitant]
     Active Substance: ATENOLOL
     Dates: start: 20000626
  7. ASPIRIN. [Concomitant]
     Active Substance: ASPIRIN
  8. ZETIA [Concomitant]
     Active Substance: EZETIMIBE
  9. SENOKOT [Concomitant]
     Active Substance: SENNOSIDES
     Route: 048
     Dates: start: 20130329
  10. TRICOR/ FENOFIBRATE [Concomitant]
     Dates: start: 20000417
  11. JANUVIA [Suspect]
     Active Substance: SITAGLIPTIN PHOSPHATE
     Indication: TYPE 2 DIABETES MELLITUS
     Route: 065
     Dates: start: 20061109, end: 20090719
  12. OXYCODONE-ACETAMINOPHEN [Concomitant]
     Active Substance: ACETAMINOPHEN\OXYCODONE HYDROCHLORIDE
     Dosage: 5-325
     Dates: start: 20130318
  13. XANAX [Concomitant]
     Active Substance: ALPRAZOLAM
     Dates: start: 20000417
  14. VITAMIN D [Concomitant]
     Active Substance: CHOLECALCIFEROL
  15. NITROSTAT [Concomitant]
     Active Substance: NITROGLYCERIN
     Dates: start: 20120117
  16. FLOMAX [Concomitant]
     Active Substance: TAMSULOSIN HYDROCHLORIDE
     Route: 048
     Dates: start: 20130329
  17. ZANTAC [Concomitant]
     Active Substance: RANITIDINE HYDROCHLORIDE
     Dates: start: 20000405
  18. LIPITOR/ ATORVASTATIN CALCIUM [Concomitant]
     Dates: start: 20000424
  19. HUMALOG [Concomitant]
     Active Substance: INSULIN LISPRO
  20. LASIX [Concomitant]
     Active Substance: FUROSEMIDE
     Route: 048
     Dates: start: 20130329
  21. GLUCOPHAGE/ METFORMIN [Concomitant]
     Dates: start: 20000929
  22. PEPCID [Concomitant]
     Active Substance: FAMOTIDINE
     Route: 048
     Dates: start: 20130329
  23. VICTOZA [Suspect]
     Active Substance: LIRAGLUTIDE
     Indication: TYPE 2 DIABETES MELLITUS
     Route: 065
     Dates: start: 20101028, end: 20130228
  24. PRINIVIL [Concomitant]
     Active Substance: LISINOPRIL
     Dates: start: 20001011
  25. VITAMIN B12 [Concomitant]
     Active Substance: CYANOCOBALAMIN
  26. EFFIENT [Concomitant]
     Active Substance: PRASUGREL HYDROCHLORIDE
     Route: 048
     Dates: start: 20130329

REACTIONS (4)
  - Adenocarcinoma pancreas [Fatal]
  - Colon adenoma [Unknown]
  - Malignant ascites [Unknown]
  - Metastases to abdominal cavity [Unknown]

NARRATIVE: CASE EVENT DATE: 201303
